FAERS Safety Report 17556632 (Version 1)
Quarter: 2020Q1

REPORT INFORMATION
  Report Type: Spontaneous
  Country: US (occurrence: US)
  Receive Date: 20200318
  Receipt Date: 20200318
  Transmission Date: 20200409
  Serious: No
  Sender: FDA-Public Use
  Company Number: US-009507513-2003USA000329

PATIENT
  Age: 55 Year
  Sex: Male

DRUGS (7)
  1. PREDNISONE. [Suspect]
     Active Substance: PREDNISONE
     Indication: PHOTOSENSITIVITY REACTION
     Dosage: 40 MILLIGRAM
     Route: 048
  2. PREDNISONE. [Suspect]
     Active Substance: PREDNISONE
     Dosage: 10 MILLIGRAM
     Route: 048
  3. DIPROLENE AF [Suspect]
     Active Substance: BETAMETHASONE DIPROPIONATE
     Indication: PHOTOSENSITIVITY REACTION
     Dosage: FOR HIS HANDS
     Route: 061
  4. FLUTICASONE. [Suspect]
     Active Substance: FLUTICASONE
     Indication: PHOTOSENSITIVITY REACTION
     Dosage: FOR HIS FACE
     Route: 061
  5. VANDETANIB. [Concomitant]
     Active Substance: VANDETANIB
     Indication: THYROID CANCER METASTATIC
     Dosage: 300 MILLIGRAM DAILY
     Route: 048
  6. PREDNISONE. [Suspect]
     Active Substance: PREDNISONE
     Dosage: 30 MILLIGRAM
     Route: 048
  7. PREDNISONE. [Suspect]
     Active Substance: PREDNISONE
     Dosage: 20 MILLIGRAM
     Route: 048

REACTIONS (1)
  - Drug ineffective [Unknown]
